FAERS Safety Report 25090004 (Version 1)
Quarter: 2025Q1

REPORT INFORMATION
  Report Type: Spontaneous
  Country: US (occurrence: None)
  Receive Date: 20250317
  Receipt Date: 20250317
  Transmission Date: 20250409
  Serious: Yes (Disabling)
  Sender: FDA-CTU
  Company Number: None

PATIENT
  Age: 57 Year
  Sex: Female
  Weight: 67.5 kg

DRUGS (7)
  1. PROVIGIL [Suspect]
     Active Substance: MODAFINIL
     Indication: Narcolepsy
  2. NUVIGIL [Suspect]
     Active Substance: ARMODAFINIL
  3. DEXTROSTAT [Concomitant]
     Active Substance: DEXTROAMPHETAMINE SULFATE
  4. CYLERT [Concomitant]
     Active Substance: PEMOLINE
  5. VITAMINS [Concomitant]
     Active Substance: VITAMINS
  6. ASPIRIN [Concomitant]
     Active Substance: ASPIRIN
  7. TYLENOL [Concomitant]
     Active Substance: ACETAMINOPHEN

REACTIONS (12)
  - Drug ineffective [None]
  - Thrombosis [None]
  - Transient ischaemic attack [None]
  - Deep vein thrombosis [None]
  - Cerebrovascular accident [None]
  - Nonspecific reaction [None]
  - Swelling face [None]
  - Swelling [None]
  - Migraine [None]
  - Neck pain [None]
  - Impaired driving ability [None]
  - Brief resolved unexplained event [None]
